FAERS Safety Report 12435771 (Version 3)
Quarter: 2016Q3

REPORT INFORMATION
  Report Type: Spontaneous
  Country: US (occurrence: US)
  Receive Date: 20160603
  Receipt Date: 20160714
  Transmission Date: 20161109
  Serious: No
  Sender: FDA-Public Use
  Company Number: US-ACTELION-A-US2016-136760

PATIENT
  Age: 72 Year
  Sex: Female

DRUGS (3)
  1. FUROSEMIDE. [Suspect]
     Active Substance: FUROSEMIDE
     Indication: PRODUCT USED FOR UNKNOWN INDICATION
     Route: 048
  2. OPSUMIT [Suspect]
     Active Substance: MACITENTAN
     Indication: PULMONARY ARTERIAL HYPERTENSION
     Dosage: 10 MG, UNK
     Route: 048
     Dates: start: 20160513
  3. SPIRONOLACTONE. [Concomitant]
     Active Substance: SPIRONOLACTONE

REACTIONS (11)
  - Heart rate irregular [Unknown]
  - Dyspnoea [Unknown]
  - Bronchitis [Unknown]
  - Fatigue [Unknown]
  - Urinary tract disorder [Unknown]
  - Neck pain [Unknown]
  - Waist circumference increased [Unknown]
  - Urinary retention [Unknown]
  - Respiratory tract inflammation [Unknown]
  - Therapy non-responder [Unknown]
  - Weight increased [Unknown]

NARRATIVE: CASE EVENT DATE: 201605
